FAERS Safety Report 20860714 (Version 4)
Quarter: 2022Q4

REPORT INFORMATION
  Report Type: Other
  Country: US (occurrence: None)
  Receive Date: 20220523
  Receipt Date: 20221226
  Transmission Date: 20230113
  Serious: Yes (Hospitalization, Other)
  Sender: FDA-Public Use
  Company Number: US-ROCHE-2828138

PATIENT
  Age: 61 Year
  Sex: Male
  Weight: 86.260 kg

DRUGS (18)
  1. OCREVUS [Suspect]
     Active Substance: OCRELIZUMAB
     Indication: Relapsing-remitting multiple sclerosis
     Dosage: DATE OF TREATMENT: 30/MAY/2019, 15/NOV/2019, 07/MAY/2020, 11/MAY/2020, 25/NOV/2020
     Route: 042
     Dates: start: 20190516
  2. OCREVUS [Suspect]
     Active Substance: OCRELIZUMAB
     Dosage: (PRESCRIBED AS INFUSE 600 MG EVERY 24 WEEKS)
     Route: 042
     Dates: start: 2020
  3. OCREVUS [Suspect]
     Active Substance: OCRELIZUMAB
     Route: 065
     Dates: start: 20200507
  4. ATORVASTATIN [Concomitant]
     Active Substance: ATORVASTATIN
  5. DICLOFENAC [Concomitant]
     Active Substance: DICLOFENAC
  6. DULOXETINE [Concomitant]
     Active Substance: DULOXETINE
  7. GABAPENTIN [Concomitant]
     Active Substance: GABAPENTIN
  8. LANSOPRAZOLE [Concomitant]
     Active Substance: LANSOPRAZOLE
  9. LOPERAMIDE [Concomitant]
     Active Substance: LOPERAMIDE
  10. MODAFINIL [Concomitant]
     Active Substance: MODAFINIL
  11. OXYBUTYNIN [Concomitant]
     Active Substance: OXYBUTYNIN
  12. PREGABALIN [Concomitant]
     Active Substance: PREGABALIN
  13. AMOXICILLIN\CLAVULANIC ACID [Concomitant]
     Active Substance: AMOXICILLIN\CLAVULANIC ACID
  14. DICLOFENAC [Concomitant]
     Active Substance: DICLOFENAC
  15. FLUTICASONE PROPIONATE [Concomitant]
     Active Substance: FLUTICASONE PROPIONATE
  16. LANSOPRAZOLE [Concomitant]
     Active Substance: LANSOPRAZOLE
  17. METOPROLOL TARTRATE [Concomitant]
     Active Substance: METOPROLOL TARTRATE
  18. TRAZODONE [Concomitant]
     Active Substance: TRAZODONE HYDROCHLORIDE

REACTIONS (20)
  - Fall [Unknown]
  - Clavicle fracture [Recovered/Resolved]
  - Pelvic fracture [Recovered/Resolved]
  - Spinal fracture [Recovered/Resolved]
  - Pain [Not Recovered/Not Resolved]
  - Joint dislocation [Recovered/Resolved]
  - Infection [Not Recovered/Not Resolved]
  - Muscular weakness [Not Recovered/Not Resolved]
  - Fracture [Not Recovered/Not Resolved]
  - Swelling [Not Recovered/Not Resolved]
  - Osteonecrosis [Not Recovered/Not Resolved]
  - Dysstasia [Not Recovered/Not Resolved]
  - Hemiparesis [Unknown]
  - Cough [Unknown]
  - Peripheral swelling [Unknown]
  - Arthralgia [Unknown]
  - Malaise [Unknown]
  - Immobile [Unknown]
  - Wrist fracture [Recovering/Resolving]
  - Upper limb fracture [Not Recovered/Not Resolved]

NARRATIVE: CASE EVENT DATE: 20210401
